FAERS Safety Report 9596753 (Version 3)
Quarter: 2013Q4

REPORT INFORMATION
  Report Type: Report from Study
  Country: DE (occurrence: DE)
  Receive Date: 20131004
  Receipt Date: 20131125
  Transmission Date: 20140711
  Serious: Yes (Life-Threatening, Hospitalization, Other)
  Sender: FDA-Public Use
  Company Number: DE-CELGENEUS-062-50794-11122117

PATIENT
  Age: 52 Year
  Sex: Male
  Weight: 126.7 kg

DRUGS (3)
  1. VIDAZA [Suspect]
     Indication: ACUTE MYELOID LEUKAEMIA
     Dosage: 220 MILLIGRAM
     Route: 065
     Dates: start: 20111108, end: 20111113
  2. IDARUBICIN [Suspect]
     Indication: ACUTE MYELOID LEUKAEMIA
     Dosage: 26.4 MILLIGRAM
     Route: 065
     Dates: start: 20111105, end: 20111109
  3. ETOPOSID [Suspect]
     Indication: ACUTE MYELOID LEUKAEMIA
     Dosage: 220 MILLIGRAM
     Route: 065
     Dates: start: 20111105, end: 20111107

REACTIONS (1)
  - Neutropenic sepsis [Recovered/Resolved with Sequelae]
